FAERS Safety Report 4831188-6 (Version None)
Quarter: 2005Q4

REPORT INFORMATION
  Report Type: 
  Country: None (occurrence: None)
  Receive Date: 20051116
  Receipt Date: 20051027
  Transmission Date: 20060501
  Serious: Yes (Other)
  Sender: FDA-Public Use
  Company Number: 2005BH002698

PATIENT
  Age: 74 Year
  Sex: Male
  Weight: 91 kg

DRUGS (17)
  1. VANCOMYCIN HCL [Suspect]
     Indication: PNEUMONIA STAPHYLOCOCCAL
     Dosage: 2X A DAY IV
     Route: 042
     Dates: start: 20050904, end: 20050906
  2. AZITHROMYCIN [Concomitant]
  3. CEFTRIAXONE [Concomitant]
  4. HEPARIN [Concomitant]
  5. LASIX [Concomitant]
  6. HYDRALAZINE [Concomitant]
  7. INSULIN [Concomitant]
  8. AMLODIPINE [Concomitant]
  9. DOCUSATE SODIUM [Concomitant]
  10. VANCOMYCIN [Concomitant]
  11. SODIUM POLYSTYRENE SULFONATE [Concomitant]
  12. ASPIRIN [Concomitant]
  13. ZOSYN [Concomitant]
  14. CALCIUM CARBONATE [Concomitant]
  15. PROSCAR [Concomitant]
  16. SIMVASTATIN [Concomitant]
  17. METPROLOL [Concomitant]

REACTIONS (4)
  - ATRIAL FIBRILLATION [None]
  - DYSPNOEA [None]
  - OXYGEN SATURATION DECREASED [None]
  - WHEEZING [None]
